FAERS Safety Report 4542800-3 (Version None)
Quarter: 2004Q4

REPORT INFORMATION
  Report Type: 
  Country: None (occurrence: None)
  Receive Date: 20041229
  Receipt Date: 20041217
  Transmission Date: 20050328
  Serious: Yes (Hospitalization)
  Sender: FDA-Public Use
  Company Number: CIP04002112

PATIENT
  Age: 82 Year
  Sex: Female
  Weight: 73.5 kg

DRUGS (7)
  1. ACTONEL [Suspect]
     Indication: OSTEOPOROSIS
     Dosage: 35 MG ONCE WEEKLY, ORAL
     Route: 048
     Dates: start: 20040601
  2. ASPIRIN [Concomitant]
  3. MULTIVIT            (VITAMINS NOS) [Concomitant]
  4. FEOSOL            (FERROUS SULFATE) [Concomitant]
  5. CALCIUM CARBONATE            (CALCIUM CARBONATE) [Concomitant]
  6. VICODIN [Concomitant]
  7. REMERON [Concomitant]

REACTIONS (8)
  - ACQUIRED PYLORIC STENOSIS [None]
  - BLOOD AMYLASE INCREASED [None]
  - BLOOD CREATINE INCREASED [None]
  - BLOOD UREA INCREASED [None]
  - GASTRIC DILATATION [None]
  - GASTRITIS EROSIVE [None]
  - HIATUS HERNIA [None]
  - OESOPHAGEAL NEOPLASM [None]
